FAERS Safety Report 4404562-X (Version None)
Quarter: 2004Q3

REPORT INFORMATION
  Report Type: 
  Country: None (occurrence: None)
  Receive Date: 20040722
  Receipt Date: 20040720
  Transmission Date: 20050211
  Serious: Yes (Hospitalization, Disabling)
  Sender: FDA-Public Use
  Company Number: GB-ROCHE-374782

PATIENT
  Age: 79 Year
  Sex: Male

DRUGS (6)
  1. CAPECITABINE [Suspect]
     Indication: GASTRIC CANCER
     Dosage: MAXIMUM 8 WEEKS.
     Route: 048
     Dates: start: 20040129, end: 20040421
  2. OXALIPLATIN [Suspect]
     Indication: GASTRIC CANCER
     Route: 042
     Dates: start: 20040129, end: 20040421
  3. EPIRUBICIN [Suspect]
     Indication: GASTRIC CANCER
     Route: 042
     Dates: start: 20040129, end: 20040421
  4. FRUSEMIDE [Concomitant]
  5. SENNA [Concomitant]
  6. CO PROXAMOL [Concomitant]

REACTIONS (7)
  - ANGIOPATHY [None]
  - COAGULOPATHY [None]
  - LEG AMPUTATION [None]
  - PAIN IN EXTREMITY [None]
  - PERIPHERAL ISCHAEMIA [None]
  - POOR PERIPHERAL CIRCULATION [None]
  - PULSE PRESSURE DECREASED [None]
